FAERS Safety Report 7682070-0 (Version None)
Quarter: 2011Q3

REPORT INFORMATION
  Report Type: 
  Country: None (occurrence: None)
  Receive Date: 20110810
  Receipt Date: 20110801
  Transmission Date: 20111222
  Serious: Yes (Death, Life-Threatening, Hospitalization, Disabling)
  Sender: FDA-Public Use
  Company Number: WAES 0912SWE00016

PATIENT
  Age: 74 Year
  Sex: Male

DRUGS (7)
  1. CAP VORINOSTAT [Suspect]
     Indication: PLEURAL MESOTHELIOMA MALIGNANT ADVANCED
     Dosage: 300 MG/BID PO
     Route: 048
     Dates: start: 20091124, end: 20091208
  2. ENALAPRIL MALEATE [Suspect]
     Indication: HYPERTENSION
     Dosage: 10 MG/DAILY PO
     Route: 048
     Dates: start: 20090716, end: 20091215
  3. SODIUM PICOSULFATE [Concomitant]
  4. TINZAPARIN SODIUM [Concomitant]
  5. FORMOTEROL FUMARATE [Concomitant]
  6. MEPREDNISONE [Concomitant]
  7. TAB CELECOXIB [Suspect]
     Indication: CHEST DISCOMFORT
     Dosage: 400 MG/DAILY PO
     Route: 048
     Dates: start: 20091020, end: 20091215

REACTIONS (13)
  - DIARRHOEA [None]
  - GENERAL PHYSICAL HEALTH DETERIORATION [None]
  - DEHYDRATION [None]
  - EMBOLISM [None]
  - RENAL IMPAIRMENT [None]
  - BLOOD PRESSURE DECREASED [None]
  - NEOPLASM PROGRESSION [None]
  - INFECTION [None]
  - MULTI-ORGAN FAILURE [None]
  - PLEURAL MESOTHELIOMA MALIGNANT ADVANCED [None]
  - METASTASES TO LIVER [None]
  - WHITE BLOOD CELL COUNT INCREASED [None]
  - ACUTE MYOCARDIAL INFARCTION [None]
